FAERS Safety Report 16281883 (Version 2)
Quarter: 2019Q2

REPORT INFORMATION
  Report Type: Report from Study
  Country: None (occurrence: DE)
  Receive Date: 20190507
  Receipt Date: 20190509
  Transmission Date: 20190711
  Serious: Yes (Hospitalization)
  Sender: FDA-Public Use
  Company Number: DE-ABBVIE-19S-062-2662335-00

PATIENT
  Age: 78 Year
  Sex: Male

DRUGS (5)
  1. DUODOPA [Suspect]
     Active Substance: CARBIDOPA\LEVODOPA
     Indication: PARKINSON^S DISEASE
     Dosage: MD 7.5  ML; CRD 1.1 ML/H; ED 0.4 ML
     Route: 050
     Dates: start: 20190205, end: 201902
  2. DUODOPA [Suspect]
     Active Substance: CARBIDOPA\LEVODOPA
     Dosage: MD 4 ML; CRD 3 ML/H; CRN 3 ML/H ED 0.5 ML
     Route: 050
     Dates: start: 2019, end: 2019
  3. DUODOPA [Suspect]
     Active Substance: CARBIDOPA\LEVODOPA
     Dosage: MD 4 ML; CRD 3.2 ML/H; CRN 3.2 ML/H ED 0.5 ML
     Route: 050
     Dates: start: 2019
  4. DUODOPA [Suspect]
     Active Substance: CARBIDOPA\LEVODOPA
     Dosage: MD 3.0 ML; CRD 2.6 ML/H; CRN 2.6 ML/H ED 0.5 ML
     Route: 050
     Dates: start: 2019, end: 2019
  5. DUODOPA [Suspect]
     Active Substance: CARBIDOPA\LEVODOPA
     Dosage: CURRENTLY STILL IN ADJUSTMENT
     Route: 050
     Dates: start: 201902, end: 2019

REACTIONS (4)
  - On and off phenomenon [Not Recovered/Not Resolved]
  - Mobility decreased [Recovered/Resolved]
  - Akinesia [Recovered/Resolved]
  - Akinesia [Not Recovered/Not Resolved]

NARRATIVE: CASE EVENT DATE: 20190211
